FAERS Safety Report 7085378-5 (Version None)
Quarter: 2010Q4

REPORT INFORMATION
  Report Type: 
  Country: None (occurrence: None)
  Receive Date: 20101105
  Receipt Date: 20101027
  Transmission Date: 20110411
  Serious: Yes (Death, Other)
  Sender: FDA-Public Use
  Company Number: PHEH2008US02471

PATIENT
  Sex: Male
  Weight: 112.47 kg

DRUGS (19)
  1. ZOMETA [Suspect]
     Dosage: 4 MG, UNK
     Dates: start: 20051130, end: 20060323
  2. LEXAPRO [Concomitant]
  3. NEXIUM [Concomitant]
     Dosage: 40 MG, QD
  4. TAXOL [Concomitant]
     Dosage: UNK
     Dates: start: 20051130
  5. PEMETREXED [Concomitant]
     Dosage: UNK
     Dates: start: 20051220, end: 20060615
  6. PLAVIX [Concomitant]
     Dosage: 75 MG, QD
  7. ASPIRIN [Concomitant]
     Dosage: 81 MG, QD
  8. LIPITOR [Concomitant]
  9. NASONEX [Concomitant]
  10. ALLEGRA [Concomitant]
     Dosage: 180 MG, QD
  11. VICODIN [Concomitant]
  12. CARBOPLATIN [Concomitant]
  13. NEULASTA [Concomitant]
     Dosage: 6 MG, UNK
     Route: 058
  14. GEMZAR [Concomitant]
  15. PROCRIT [Concomitant]
  16. NAVELBINE [Concomitant]
  17. RADIATION [Concomitant]
  18. ALEVE [Concomitant]
  19. AMITRIPTYLINE HCL [Concomitant]

REACTIONS (27)
  - ANAEMIA [None]
  - CENTRAL VENOUS CATHETERISATION [None]
  - CEREBRAL ISCHAEMIA [None]
  - DEATH [None]
  - DEPRESSION [None]
  - FLANK PAIN [None]
  - GENERAL PHYSICAL HEALTH DETERIORATION [None]
  - GINGIVAL DISORDER [None]
  - INFECTION [None]
  - INTERVERTEBRAL DISC DEGENERATION [None]
  - JAW DISORDER [None]
  - JAW OPERATION [None]
  - LEUKOPENIA [None]
  - LUNG CARCINOMA CELL TYPE UNSPECIFIED RECURRENT [None]
  - MENTAL STATUS CHANGES [None]
  - METASTASES TO BONE [None]
  - METASTASES TO LIVER [None]
  - METASTATIC PAIN [None]
  - MUSCULOSKELETAL PAIN [None]
  - NECK PAIN [None]
  - OSTEONECROSIS OF JAW [None]
  - PAIN [None]
  - PAIN IN JAW [None]
  - PANCYTOPENIA [None]
  - PATHOLOGICAL FRACTURE [None]
  - RASH [None]
  - WEIGHT INCREASED [None]
